FAERS Safety Report 8537039-0 (Version None)
Quarter: 2012Q3

REPORT INFORMATION
  Report Type: 
  Country: None (occurrence: None)
  Receive Date: 20120725
  Receipt Date: 20120720
  Transmission Date: 20120928
  Serious: Yes (Other)
  Sender: FDA-Public Use
  Company Number: US-PFIZER INC-2012161059

PATIENT
  Sex: Female
  Weight: 65.76 kg

DRUGS (5)
  1. DIOVAN [Concomitant]
     Dosage: UNK
  2. LIPITOR [Suspect]
     Indication: BLOOD CHOLESTEROL INCREASED
     Dosage: 10 MG, 1X/DAY
     Route: 048
  3. PROTONIX [Suspect]
     Indication: GASTRIC DISORDER
     Dosage: 40 MG, 2X/DAY
     Route: 048
  4. NEXIUM [Suspect]
     Indication: GASTRIC DISORDER
     Dosage: UNK
  5. PREVACID [Suspect]
     Indication: GASTRIC DISORDER
     Dosage: UNK

REACTIONS (9)
  - GASTRIC CANCER [None]
  - INFECTION [None]
  - GASTRIC ULCER [None]
  - DRUG INEFFECTIVE [None]
  - MALAISE [None]
  - HELICOBACTER INFECTION [None]
  - DYSPEPSIA [None]
  - ENTERITIS INFECTIOUS [None]
  - MEMORY IMPAIRMENT [None]
